FAERS Safety Report 5370586-1 (Version None)
Quarter: 2007Q2

REPORT INFORMATION
  Report Type: 
  Country: None (occurrence: None)
  Receive Date: 20070626
  Receipt Date: 20070615
  Transmission Date: 20071010
  Serious: Yes (Hospitalization)
  Sender: FDA-Public Use
  Company Number: US-MERCK-0706USA02630

PATIENT
  Age: 82 Year
  Sex: Female
  Weight: 56 kg

DRUGS (8)
  1. PRINIVIL [Suspect]
     Route: 048
  2. ZOCOR [Concomitant]
     Route: 048
  3. ASPIRIN [Concomitant]
     Route: 065
  4. DIGOXIN [Concomitant]
     Route: 065
  5. ATENOLOL [Concomitant]
     Route: 065
  6. MOXIFLOXACIN HYDROCHLORIDE [Concomitant]
     Route: 065
  7. COUMADIN [Concomitant]
     Route: 065
  8. ISOSORBIDE MONONITRATE [Concomitant]
     Route: 065

REACTIONS (6)
  - ASTHENIA [None]
  - CARDIAC DISORDER [None]
  - DYSPNOEA [None]
  - DYSPNOEA EXERTIONAL [None]
  - FATIGUE [None]
  - PNEUMONIA [None]
